FAERS Safety Report 6493267-X (Version None)
Quarter: 2009Q4

REPORT INFORMATION
  Report Type: 
  Country: None (occurrence: None)
  Receive Date: 20091214
  Receipt Date: 20091210
  Transmission Date: 20100525
  Serious: Yes (Death, Hospitalization, Other)
  Sender: FDA-Public Use
  Company Number: US-JNJFOC-20091203153

PATIENT
  Age: 85 Year
  Sex: Male

DRUGS (2)
  1. HALDOL [Suspect]
     Indication: DRUG USE FOR UNKNOWN INDICATION
     Route: 030
     Dates: start: 20060101
  2. WARFARIN SODIUM [Concomitant]
     Route: 065

REACTIONS (3)
  - HAEMORRHAGE [None]
  - PULMONARY EMBOLISM [None]
  - PULMONARY THROMBOSIS [None]
